FAERS Safety Report 20407562 (Version 1)
Quarter: 2022Q1

REPORT INFORMATION
  Report Type: Spontaneous
  Country: CA (occurrence: CA)
  Receive Date: 20220131
  Receipt Date: 20220131
  Transmission Date: 20220423
  Serious: Yes (Life-Threatening, Hospitalization, Other)
  Sender: FDA-Public Use
  Company Number: CA-JNJFOC-20220149054

PATIENT
  Age: 48 Year
  Sex: Male
  Weight: 95 kg

DRUGS (4)
  1. SIMPONI [Suspect]
     Active Substance: GOLIMUMAB
     Indication: Ankylosing spondylitis
     Route: 058
  2. CALCIUM [Concomitant]
     Active Substance: CALCIUM
  3. TRAZODONE [Concomitant]
     Active Substance: TRAZODONE HYDROCHLORIDE
  4. VENLAFAXINE HYDROCHLORIDE [Concomitant]
     Active Substance: VENLAFAXINE HYDROCHLORIDE

REACTIONS (5)
  - Glomerulonephritis [Recovering/Resolving]
  - Cutaneous vasculitis [Recovering/Resolving]
  - Blood blister [Recovering/Resolving]
  - Petechiae [Recovering/Resolving]
  - Purpura [Recovering/Resolving]
